FAERS Safety Report 15675690 (Version 1)
Quarter: 2018Q4

REPORT INFORMATION
  Report Type: Report from Study
  Country: US (occurrence: US)
  Receive Date: 20181130
  Receipt Date: 20181130
  Transmission Date: 20190205
  Serious: Yes (Other)
  Sender: FDA-Public Use
  Company Number: US-BAYER-2018-218735

PATIENT
  Age: 26 Year
  Sex: Female

DRUGS (2)
  1. NEXAVAR [Suspect]
     Active Substance: SORAFENIB
     Indication: CARTILAGE NEOPLASM
     Dosage: 400 MG, BID
     Route: 048
     Dates: start: 20171118, end: 20180918
  2. NEXAVAR [Suspect]
     Active Substance: SORAFENIB
     Indication: BONE CANCER

REACTIONS (3)
  - Gastrointestinal toxicity [Recovered/Resolved]
  - Off label use [None]
  - Product use in unapproved indication [None]

NARRATIVE: CASE EVENT DATE: 20180918
